FAERS Safety Report 14327957 (Version 1)
Quarter: 2017Q4

REPORT INFORMATION
  Report Type: Report from Study
  Country: None (occurrence: AR)
  Receive Date: 20171227
  Receipt Date: 20171227
  Transmission Date: 20180321
  Serious: Yes (Other)
  Sender: FDA-Public Use
  Company Number: AR-ABBVIE-17S-007-2204315-00

PATIENT
  Age: 22 Year
  Sex: Female

DRUGS (1)
  1. ZEMPLAR [Suspect]
     Active Substance: PARICALCITOL
     Indication: HYPERPARATHYROIDISM SECONDARY
     Route: 048
     Dates: start: 20140502

REACTIONS (3)
  - Menorrhagia [Unknown]
  - Anaemia [Recovering/Resolving]
  - Blister [Not Recovered/Not Resolved]

NARRATIVE: CASE EVENT DATE: 2017
